FAERS Safety Report 19373785 (Version 4)
Quarter: 2021Q3

REPORT INFORMATION
  Report Type: Report from Study
  Country: CN (occurrence: CN)
  Receive Date: 20210603
  Receipt Date: 20210804
  Transmission Date: 20211014
  Serious: Yes (Hospitalization)
  Sender: FDA-Public Use
  Company Number: CN-PFIZER INC-2021618144

PATIENT
  Age: 70 Year
  Sex: Female
  Weight: 70 kg

DRUGS (12)
  1. SODIUM BICARBONATE. [Concomitant]
     Active Substance: SODIUM BICARBONATE
     Indication: PROPHYLAXIS
     Dosage: 5 G, 1X/DAY
     Route: 041
     Dates: start: 20210513, end: 20210515
  2. CARBOPLATIN. [Suspect]
     Active Substance: CARBOPLATIN
     Indication: LUNG SQUAMOUS CELL CARCINOMA STAGE IV
     Dosage: 500 MG, ONCE EVERY 3 WEEKS, TRADE NAME: BOBEI
     Route: 041
     Dates: start: 20210513, end: 20210513
  3. CIMETIDINE [Concomitant]
     Active Substance: CIMETIDINE
     Indication: PROPHYLAXIS
     Dosage: 400 MG, 1X/DAY
     Route: 042
     Dates: start: 20210512, end: 20210512
  4. ACETAMINOPHEN. [Concomitant]
     Active Substance: ACETAMINOPHEN
     Indication: PROPHYLAXIS
     Dosage: 1000 MG, 1X/DAY
     Route: 048
     Dates: start: 20210512, end: 20210512
  5. BROMHEXINE HYDROCHLORIDE [Concomitant]
     Active Substance: BROMHEXINE HYDROCHLORIDE
     Indication: PRODUCTIVE COUGH
     Dosage: 4 MG, 1X/DAY
     Route: 041
     Dates: start: 20210512, end: 20210515
  6. ANZATAX (PACLITAXEL) [Suspect]
     Active Substance: PACLITAXEL
     Indication: LUNG SQUAMOUS CELL CARCINOMA STAGE IV
     Dosage: 270 MG, ONCE EVERY THREE WEEKS
     Route: 041
     Dates: start: 20210513, end: 20210513
  7. BLINDED THERAPY [Suspect]
     Active Substance: INVESTIGATIONAL PRODUCT
     Indication: LUNG SQUAMOUS CELL CARCINOMA STAGE IV
     Dosage: ONCE EVERY 3 WEEKS
     Route: 041
     Dates: start: 20210512, end: 20210512
  8. ACETYLCYSTEINE. [Concomitant]
     Active Substance: ACETYLCYSTEINE
     Indication: PRODUCTIVE COUGH
     Dosage: 4 G, 1X/DAY
     Route: 041
     Dates: start: 20210512, end: 20210515
  9. GLUCOSE/THEOPHYLLINE [Concomitant]
     Indication: DYSPNOEA
     Dosage: 25 G, 1X/DAY
     Route: 041
     Dates: start: 20210512, end: 20210515
  10. DIPHENHYDRAMINE. [Concomitant]
     Active Substance: DIPHENHYDRAMINE
     Dosage: 50 MG, 1X/DAY, DIPHENHYDRAMINE HYDROCHLORIDE
     Route: 030
     Dates: start: 20210512, end: 20210512
  11. LOW MOLECULAR WEIGHT HEPARIN CALCIUM [Concomitant]
     Active Substance: HEPARIN CALCIUM
     Indication: THROMBOSIS PROPHYLAXIS
     Dosage: 4100 IU, 1X/DAY
     Route: 058
     Dates: start: 20210513, end: 20210515
  12. SANGUISORBA OFFICINALIS [Concomitant]
     Indication: PROPHYLAXIS
     Dosage: 0.4 G, 3X/DAY, DIYUSHENGBAI
     Route: 048
     Dates: start: 20210513, end: 20210515

REACTIONS (1)
  - Drug-induced liver injury [Recovered/Resolved]

NARRATIVE: CASE EVENT DATE: 20210518
